FAERS Safety Report 8489589-3 (Version None)
Quarter: 2012Q3

REPORT INFORMATION
  Report Type: 
  Country: None (occurrence: None)
  Receive Date: 20120705
  Receipt Date: 20120620
  Transmission Date: 20120928
  Serious: Yes (Hospitalization)
  Sender: FDA-Public Use
  Company Number: JP-EISAI INC-E2090-02163-SPO-JP

PATIENT
  Sex: Male

DRUGS (8)
  1. LOXONIN [Concomitant]
     Route: 048
     Dates: start: 20120113, end: 20120117
  2. PRORENAL [Concomitant]
     Dosage: 15 MCG DAILY
     Route: 048
     Dates: start: 20120113, end: 20120117
  3. VALPROATE SODIUM [Suspect]
     Dosage: 1200 MG DAILY
     Route: 048
     Dates: start: 20070201, end: 20120117
  4. LEXIN [Concomitant]
     Dosage: 200 MG DAILY
     Route: 048
     Dates: start: 20070201, end: 20120117
  5. MUCOSTA [Concomitant]
     Dosage: 300 MG DAILY
     Route: 048
     Dates: start: 20120113, end: 20120117
  6. VITAMIN B12 [Concomitant]
     Dosage: 1.5 MG DAILY
     Route: 048
     Dates: start: 20120113, end: 20120117
  7. ZONISAMIDE [Suspect]
     Route: 048
     Dates: start: 20080916, end: 20120117
  8. DIOVAN [Concomitant]
     Indication: HYPERTENSION
     Dosage: 80 MG DAILY
     Route: 048
     Dates: end: 20120117

REACTIONS (1)
  - PANCYTOPENIA [None]
